FAERS Safety Report 16775700 (Version 1)
Quarter: 2019Q3

REPORT INFORMATION
  Report Type: Spontaneous
  Country: FR (occurrence: FR)
  Receive Date: 20190905
  Receipt Date: 20190905
  Transmission Date: 20191005
  Serious: Yes (Other)
  Sender: FDA-Public Use
  Company Number: FR-PFIZER INC-2019375671

PATIENT
  Age: 71 Year
  Sex: Female
  Weight: 100 kg

DRUGS (1)
  1. XALKORI [Suspect]
     Active Substance: CRIZOTINIB
     Indication: LUNG ADENOCARCINOMA STAGE IV
     Dosage: 2 DF, 1X/DAY
     Route: 048
     Dates: start: 20181121, end: 20190809

REACTIONS (1)
  - Capillary leak syndrome [Not Recovered/Not Resolved]

NARRATIVE: CASE EVENT DATE: 201907
